FAERS Safety Report 21698217 (Version 1)
Quarter: 2022Q4

REPORT INFORMATION
  Report Type: Other
  Country: AT (occurrence: None)
  Receive Date: 20221208
  Receipt Date: 20221208
  Transmission Date: 20230112
  Serious: Yes (Other)
  Sender: FDA-Public Use
  Company Number: AT-ROCHE-3234094

PATIENT
  Age: 14 Year
  Sex: Female

DRUGS (8)
  1. BEVACIZUMAB [Suspect]
     Active Substance: BEVACIZUMAB
     Indication: Medulloblastoma recurrent
     Route: 042
  2. THALIDOMIDE [Suspect]
     Active Substance: THALIDOMIDE
     Indication: Medulloblastoma recurrent
     Route: 048
  3. FENOFIBRATE [Suspect]
     Active Substance: FENOFIBRATE
     Indication: Medulloblastoma recurrent
     Dosage: MAX. 200 MG
     Route: 048
  4. CELECOXIB [Suspect]
     Active Substance: CELECOXIB
     Indication: Medulloblastoma recurrent
     Route: 048
  5. ETOPOSIDE [Suspect]
     Active Substance: ETOPOSIDE
     Indication: Medulloblastoma recurrent
     Dosage: 35-50 MG/M2 DAILY
     Route: 048
  6. ETOPOSIDE [Suspect]
     Active Substance: ETOPOSIDE
     Dosage: {1 YEARS 0.25 MG DAILY FOR 5 DAYS
  7. CYCLOPHOSPHAMIDE [Suspect]
     Active Substance: CYCLOPHOSPHAMIDE
     Indication: Medulloblastoma recurrent
     Dosage: MAX. 100 MG
     Route: 065
  8. CYTARABINE [Suspect]
     Active Substance: CYTARABINE
     Indication: Medulloblastoma recurrent
     Dosage: 0-3 YEARS 25 MG, 3-9 YEARS 35 MG, }9 YEARS 50 MG

REACTIONS (3)
  - Acute respiratory distress syndrome [Unknown]
  - Pneumonitis [Unknown]
  - Proteinuria [Unknown]
